FAERS Safety Report 16723592 (Version 1)
Quarter: 2019Q3

REPORT INFORMATION
  Report Type: Spontaneous
  Country: ES (occurrence: ES)
  Receive Date: 20190821
  Receipt Date: 20190821
  Transmission Date: 20191005
  Serious: Yes (Hospitalization)
  Sender: FDA-Public Use
  Company Number: ES-TEVA-2019-ES-1094261

PATIENT
  Age: 52 Year
  Sex: Female
  Weight: 97 kg

DRUGS (5)
  1. CIPROFLOXACINO (2049A) [Suspect]
     Active Substance: CIPROFLOXACIN
     Indication: PSEUDOMONAS INFECTION
     Dosage: 750 MILLIGRAM, 12 HOURS
     Route: 048
     Dates: start: 20190507, end: 20190521
  2. FUROSEMIDA (FUROSEMIDE) [Interacting]
     Active Substance: FUROSEMIDE
     Indication: OEDEMA
     Dosage: 40 MG, 1 DAY; 500 TABLETS
     Route: 048
     Dates: start: 20190515, end: 20190521
  3. RISTFOR 50MG/1000 MG COMPRIMIDOS RECUBIERTOS CON PELICULA, 56 COMPRIMI [Concomitant]
     Indication: DIABETES MELLITUS
     Dosage: 1 DOSAGE FORM PER 12 HOURS; 50 MG/1000MG
     Route: 048
     Dates: start: 20180301
  4. LEVOTIROXINA SODICA TEVA 100 MICROGRAMOS COMPRIMIDOS EFG , 50 COMPRIMI [Concomitant]
     Indication: HYPOTHYROIDISM
     Dosage: 1 MICROGRAM; 50 TABLETS
     Route: 048
     Dates: start: 20180301
  5. QUETIAPINA NORMON 25 MG COMPRIMIDOS RECUBIERTOS CON PELICULA EFG, 250 [Concomitant]
     Indication: DEPRESSION
     Dosage: 25MG, 1 DAY; 250 TABLETS
     Route: 048
     Dates: start: 20180301

REACTIONS (2)
  - Tubulointerstitial nephritis [Recovered/Resolved]
  - Drug interaction [Unknown]

NARRATIVE: CASE EVENT DATE: 20190521
